FAERS Safety Report 4342271-6 (Version None)
Quarter: 2004Q2

REPORT INFORMATION
  Report Type: 
  Country: None (occurrence: None)
  Receive Date: 20040420
  Receipt Date: 20040420
  Transmission Date: 20050107
  Serious: Yes (Death)
  Sender: FDA-Public Use
  Company Number: None

PATIENT
  Age: 15 Year
  Sex: Female
  Weight: 45.8133 kg

DRUGS (3)
  1. GENTAMICIN [Suspect]
     Indication: CYSTIC FIBROSIS
     Dosage: 160 MG IV Q 8 HRS
     Route: 042
     Dates: start: 20040308, end: 20040320
  2. CEFEPIME [Suspect]
     Indication: CYSTIC FIBROSIS
     Dosage: 2G IV Q 8 HRS
     Route: 042
     Dates: start: 20040308, end: 20040321
  3. IBUPROFEN [Concomitant]

REACTIONS (6)
  - BLOOD CREATININE INCREASED [None]
  - BRAIN OEDEMA [None]
  - CATHETER RELATED COMPLICATION [None]
  - DRUG LEVEL INCREASED [None]
  - DRUG TOXICITY [None]
  - RENAL TUBULAR NECROSIS [None]
